FAERS Safety Report 20517475 (Version 1)
Quarter: 2022Q1

REPORT INFORMATION
  Report Type: Spontaneous
  Country: IT (occurrence: IT)
  Receive Date: 20220225
  Receipt Date: 20220225
  Transmission Date: 20220423
  Serious: Yes (Hospitalization, Other)
  Sender: FDA-Public Use
  Company Number: None

PATIENT
  Age: 28 Year
  Sex: Female

DRUGS (5)
  1. TRIPTORELIN [Suspect]
     Active Substance: TRIPTORELIN
     Indication: Controlled ovarian stimulation
  2. ENOXAPARIN SODIUM [Suspect]
     Active Substance: ENOXAPARIN SODIUM
     Indication: Haemorrhage prophylaxis
     Dosage: 4000 IU DAILY
  3. TRIPTORELIN [Suspect]
     Active Substance: TRIPTORELIN
     Indication: Controlled ovarian stimulation
     Dosage: 0.2 MG
     Route: 065
  4. FOLLITROPIN ALFA [Suspect]
     Active Substance: FOLLITROPIN ALFA
     Indication: Controlled ovarian stimulation
     Dosage: 150IU, DAILY
  5. ORGALUTRAN [Suspect]
     Active Substance: GANIRELIX ACETATE
     Indication: Controlled ovarian stimulation
     Dosage: STARTED RECEIVING INJECTION OF GANIRELIX (ORGALUTRAN) DAILY

REACTIONS (9)
  - Ovarian hyperstimulation syndrome [Recovered/Resolved]
  - Treatment delayed [Unknown]
  - Nausea [Unknown]
  - Dysuria [Unknown]
  - Abdominal distension [Unknown]
  - Vomiting [Unknown]
  - Abdominal pain [Unknown]
  - Ascites [Unknown]
  - Off label use [Unknown]
